FAERS Safety Report 7767019-4 (Version None)
Quarter: 2011Q3

REPORT INFORMATION
  Report Type: 
  Country: None (occurrence: None)
  Receive Date: 20110922
  Receipt Date: 20090721
  Transmission Date: 20111222
  Serious: No
  Sender: FDA-Public Use
  Company Number: US-ASTRAZENECA-2007UW19724

PATIENT
  Age: 20138 Day
  Sex: Male
  Weight: 113.4 kg

DRUGS (16)
  1. SEROQUEL [Suspect]
     Route: 048
     Dates: start: 20030201, end: 20060301
  2. FLUOXETINE HCL/PROZAC [Concomitant]
     Dates: start: 20050101
  3. SEROQUEL [Suspect]
     Dosage: 25-50 MG
     Route: 048
     Dates: start: 20040816
  4. SEROQUEL [Suspect]
     Route: 048
     Dates: end: 20060629
  5. MIRTAZAPINE [Concomitant]
     Indication: SLEEP DISORDER
     Dates: start: 20050101
  6. SEROQUEL [Suspect]
     Route: 048
     Dates: start: 20030201, end: 20060301
  7. HYDROXYZINE [Concomitant]
     Indication: SLEEP DISORDER
     Dates: start: 20060629
  8. MIRTAZAPINE [Concomitant]
     Indication: DEPRESSION
     Dates: start: 20050101
  9. SEROQUEL [Suspect]
     Dosage: 25-50 MG
     Route: 048
     Dates: start: 20040816
  10. SEROQUEL [Suspect]
     Route: 048
     Dates: end: 20060629
  11. SEROQUEL [Suspect]
     Indication: SLEEP DISORDER
     Dosage: 200 MG
     Route: 048
     Dates: start: 19970101, end: 20050810
  12. SEROQUEL [Suspect]
     Indication: PARANOIA
     Dosage: 200 MG
     Route: 048
     Dates: start: 19970101, end: 20050810
  13. FLUOXETINE HCL/PROZAC [Concomitant]
     Indication: POST-TRAUMATIC STRESS DISORDER
     Dosage: 20 MG TWICE A DAY, 20 MG EVERYDAY
     Route: 048
     Dates: start: 20040816
  14. DIVALPROEX SODIUM [Concomitant]
     Indication: AFFECTIVE DISORDER
     Dosage: 1000 MG TAB TWO TO THREE TIMES A DAY
     Route: 048
     Dates: start: 20040816
  15. LISINOPRIL [Concomitant]
     Route: 048
     Dates: start: 20040816
  16. ASPIRIN [Concomitant]
     Dates: start: 20070628

REACTIONS (5)
  - TYPE 2 DIABETES MELLITUS [None]
  - OBESITY [None]
  - HYPERLIPIDAEMIA [None]
  - DYSLIPIDAEMIA [None]
  - BLOOD CHOLESTEROL INCREASED [None]
